FAERS Safety Report 9285507 (Version 1)
Quarter: 2013Q2

REPORT INFORMATION
  Report Type: Spontaneous
  Country: US (occurrence: US)
  Receive Date: 20130513
  Receipt Date: 20130513
  Transmission Date: 20140414
  Serious: No
  Sender: FDA-Public Use
  Company Number: US-PFIZER INC-2013143753

PATIENT
  Age: 55 Year
  Sex: Male

DRUGS (2)
  1. GENOTROPIN MQ [Suspect]
     Indication: HYPOGONADISM
     Dosage: 1.6 MG, 1X/DAY
     Dates: start: 200607
  2. MOTRIN [Suspect]
     Indication: ARTHRALGIA
     Dosage: 800 MG, AS NEEDED

REACTIONS (3)
  - Arthralgia [Unknown]
  - Product quality issue [Unknown]
  - Incorrect dose administered [Unknown]
